FAERS Safety Report 5916121-8 (Version None)
Quarter: 2008Q4

REPORT INFORMATION
  Report Type: 
  Country: None (occurrence: None)
  Receive Date: 20081009
  Receipt Date: 20081009
  Transmission Date: 20090506
  Serious: Yes (Life-Threatening)
  Sender: FDA-Public Use
  Company Number: None

PATIENT
  Sex: Female
  Weight: 68.0396 kg

DRUGS (1)
  1. ALTACE [Suspect]
     Indication: HYPERTENSION
     Dosage: 5 MG  ALTACE ONE TAB BID PO
     Route: 048

REACTIONS (3)
  - DYSPNOEA [None]
  - PRODUCT QUALITY ISSUE [None]
  - SWELLING [None]
